FAERS Safety Report 6967792-9 (Version None)
Quarter: 2010Q3

REPORT INFORMATION
  Report Type: 
  Country: None (occurrence: None)
  Receive Date: 20100907
  Receipt Date: 20100827
  Transmission Date: 20110219
  Serious: Yes (Other)
  Sender: FDA-Public Use
  Company Number: AU-BAYER-201038162GPV

PATIENT
  Age: 35 Year
  Sex: Female

DRUGS (1)
  1. ULTRAVIST 370 [Suspect]
     Indication: COMPUTERISED TOMOGRAM
     Route: 042
     Dates: start: 20100708

REACTIONS (4)
  - EYE PRURITUS [None]
  - PARAESTHESIA ORAL [None]
  - RESPIRATORY DISTRESS [None]
  - STRIDOR [None]
